FAERS Safety Report 7771720-6 (Version None)
Quarter: 2011Q3

REPORT INFORMATION
  Report Type: 
  Country: None (occurrence: None)
  Receive Date: 20110922
  Receipt Date: 20110216
  Transmission Date: 20111222
  Serious: No
  Sender: FDA-Public Use
  Company Number: US-ASTRAZENECA-2011SE09117

PATIENT
  Age: 50 Year
  Sex: Female
  Weight: 86.6 kg

DRUGS (2)
  1. NEXIUM [Suspect]
  2. SEROQUEL XR [Suspect]
     Indication: BIPOLAR II DISORDER
     Route: 048

REACTIONS (1)
  - HEPATITIS C [None]
